FAERS Safety Report 4731735-9 (Version None)
Quarter: 2005Q3

REPORT INFORMATION
  Report Type: 
  Country: None (occurrence: None)
  Receive Date: 20050802
  Receipt Date: 20050725
  Transmission Date: 20060218
  Serious: Yes (Other)
  Sender: FDA-Public Use
  Company Number: PHBS2005JM10948

PATIENT
  Sex: Female

DRUGS (2)
  1. AREDIA [Suspect]
     Route: 042
  2. ZOMETA [Suspect]
     Route: 042

REACTIONS (2)
  - BONE DISORDER [None]
  - JAW DISORDER [None]
